FAERS Safety Report 8965501 (Version 1)
Quarter: 2012Q4

REPORT INFORMATION
  Report Type: Spontaneous
  Country: US (occurrence: None)
  Receive Date: 20121205
  Receipt Date: 20121205
  Transmission Date: 20130627
  Serious: Yes (Other)
  Sender: FDA-Public Use
  Company Number: CPR-2012-0002

PATIENT
  Age: 72 Year
  Sex: Female

DRUGS (1)
  1. LIOTHYRONINE SODIUM [Suspect]
     Indication: PRODUCT USED FOR UNKNOWN INDICATION
     Dosage: 25 mcg, qd, Oral
     Route: 048
     Dates: start: 2012, end: 20121009

REACTIONS (4)
  - Atrial fibrillation [None]
  - Hyperthyroidism [None]
  - Tri-iodothyronine free increased [None]
  - Malaise [None]
